FAERS Safety Report 10549258 (Version 1)
Quarter: 2014Q3

REPORT INFORMATION
  Report Type: Spontaneous
  Country: US (occurrence: None)
  Receive Date: 20140903
  Receipt Date: 20140903
  Transmission Date: 20150326
  Serious: Yes (Hospitalization)
  Sender: FDA-Public Use
  Company Number: CABO-14004514

PATIENT
  Age: 53 Year
  Sex: Female
  Weight: 61.4 kg

DRUGS (7)
  1. TORSEMIDE (TORSEMIDE) UNKNOWN [Concomitant]
     Active Substance: TORSEMIDE
  2. SYNTHROID [Concomitant]
     Active Substance: LEVOTHYROXINE SODIUM
  3. METOPROLOL (METOPROLOL) [Concomitant]
     Active Substance: METOPROLOL
  4. PERCOCET (OXYCODONE HYDROCHLORIDE, OXYCODONE TEREPHALATE, PARACETAMOL) [Concomitant]
  5. COMETRIQ [Suspect]
     Active Substance: CABOZANTINIB S-MALATE
     Indication: THYROID CANCER
     Route: 048
     Dates: start: 20140618
  6. POTASSIUM (POTASSIUM) [Concomitant]
     Active Substance: POTASSIUM
  7. ADVIL [Concomitant]
     Active Substance: IBUPROFEN

REACTIONS (1)
  - Blood calcium decreased [None]

NARRATIVE: CASE EVENT DATE: 201407
